FAERS Safety Report 12318988 (Version 1)
Quarter: 2016Q2

REPORT INFORMATION
  Report Type: Spontaneous
  Country: US (occurrence: US)
  Receive Date: 20160429
  Receipt Date: 20160429
  Transmission Date: 20160815
  Serious: Yes (Hospitalization, Other)
  Sender: FDA-Public Use
  Company Number: US-INDIVIOR LIMITED-INDV-090031-2016

PATIENT
  Sex: Female

DRUGS (4)
  1. SUBOXONE [Suspect]
     Active Substance: BUPRENORPHINE HYDROCHLORIDE\NALOXONE HYDROCHLORIDE
     Dosage: 8 MG, QD
     Route: 060
     Dates: start: 2015
  2. SUBOXONE [Suspect]
     Active Substance: BUPRENORPHINE HYDROCHLORIDE\NALOXONE HYDROCHLORIDE
     Dosage: 4 MG, BID (HALF OF AN 8 MG STRIP IN THE AM AND THE OTHER HALF IN THE PM)
     Route: 060
  3. SUBOXONE [Suspect]
     Active Substance: BUPRENORPHINE HYDROCHLORIDE\NALOXONE HYDROCHLORIDE
     Indication: DRUG DEPENDENCE
     Dosage: 8 MG, QD
     Route: 060
     Dates: start: 2013
  4. SUBOXONE [Suspect]
     Active Substance: BUPRENORPHINE HYDROCHLORIDE\NALOXONE HYDROCHLORIDE
     Dosage: SELF TAPERING DOSES, DAILY
     Route: 060
     Dates: end: 2015

REACTIONS (9)
  - Colitis [Recovered/Resolved]
  - Clostridium difficile infection [Recovered/Resolved]
  - Intentional underdose [Recovered/Resolved]
  - Product preparation error [Not Recovered/Not Resolved]
  - Condition aggravated [Recovered/Resolved]
  - Tooth disorder [Recovered/Resolved]
  - Abdominal pain upper [Recovered/Resolved]
  - Intentional product misuse [Not Recovered/Not Resolved]
  - Loss of consciousness [Recovered/Resolved]

NARRATIVE: CASE EVENT DATE: 2015
